FAERS Safety Report 4637448-6 (Version None)
Quarter: 2005Q2

REPORT INFORMATION
  Report Type: 
  Country: None (occurrence: None)
  Receive Date: 20050418
  Receipt Date: 20050311
  Transmission Date: 20051028
  Serious: Yes (Hospitalization)
  Sender: FDA-Public Use
  Company Number: US-NOVOPROD-242887

PATIENT
  Age: 69 Year
  Sex: Male
  Weight: 88 kg

DRUGS (23)
  1. INSULIN DETEMIR [Suspect]
     Indication: INSULIN-REQUIRING TYPE II DIABETES MELLITUS
     Dosage: 78 IU, QD
     Route: 058
     Dates: start: 20041201, end: 20050211
  2. NOVOLOG [Suspect]
     Indication: INSULIN-REQUIRING TYPE II DIABETES MELLITUS
     Dosage: 18 IU, QD
     Route: 058
     Dates: start: 20041201, end: 20050211
  3. LISINOPRIL [Concomitant]
     Indication: HYPERTENSION
     Dosage: 20 MG, QD
     Route: 048
     Dates: start: 20001001
  4. ELAVIL [Concomitant]
     Indication: NEUROPATHY
     Dosage: 50 MG, QD
     Route: 048
     Dates: start: 20030101
  5. CLOPIDOGREL [Concomitant]
     Indication: PERIPHERAL VASCULAR DISORDER
     Dosage: 75 MG, QD
     Route: 048
     Dates: start: 20040901
  6. GEMFIBROZIL [Concomitant]
     Indication: HYPERLIPIDAEMIA
     Dosage: 600 MG, QD
     Route: 048
     Dates: start: 20030101
  7. EZETIMIBE [Concomitant]
     Indication: CORONARY ARTERY DISEASE
     Dosage: 10 MG, QD
     Route: 048
     Dates: start: 20040101
  8. SIMVASTATIN [Concomitant]
     Indication: CORONARY ARTERY DISEASE
     Dosage: 80 MG, QD
     Route: 048
     Dates: start: 20040101
  9. ACTOS                                   /USA/ [Concomitant]
     Dosage: 45 MG, QD
     Route: 048
  10. GLUCOTROL [Concomitant]
     Dosage: 20 MG, BID
     Route: 048
  11. CEFTRIAXONE [Concomitant]
     Indication: LEUKOCYTOSIS
     Dates: start: 20050211, end: 20050217
  12. AZITHROMYCIN [Concomitant]
     Indication: LEUKOCYTOSIS
     Dates: start: 20050211, end: 20050217
  13. ALBUTEROL [Concomitant]
  14. ATROVENT [Concomitant]
  15. PLETAL [Concomitant]
     Dosage: 50 MG, BID
  16. NPH INSULIN [Concomitant]
     Indication: DIABETES MELLITUS NON-INSULIN-DEPENDENT
     Dosage: 52 IU, QD
  17. GLIPIZIDE [Concomitant]
     Dosage: 40 MG, QD
  18. TEMAZEPAM [Concomitant]
     Dosage: 50 MG, QD
  19. PLAVIX [Concomitant]
     Dosage: 75 MG, QD
     Route: 048
  20. ACETYL SALICYLIC ACID USP BAT [Concomitant]
     Dosage: 81 MG, QD
     Route: 048
  21. LOVENOX [Concomitant]
     Indication: THROMBOSIS PROPHYLAXIS
     Dosage: 40 MG, QD
     Route: 058
  22. DULCOLAX [Concomitant]
     Dosage: UNK, PRN
  23. HYDROCHLOROTHIAZIDE [Concomitant]
     Dosage: 25 MG, QD
     Route: 048
     Dates: start: 20001001

REACTIONS (8)
  - AORTIC VALVE SCLEROSIS [None]
  - CEREBELLAR INFARCTION [None]
  - LEUKOCYTOSIS [None]
  - MITRAL VALVE CALCIFICATION [None]
  - MITRAL VALVE INCOMPETENCE [None]
  - SENSORY DISTURBANCE [None]
  - SINUSITIS [None]
  - TRICUSPID VALVE INCOMPETENCE [None]
